FAERS Safety Report 25531748 (Version 1)
Quarter: 2025Q3

REPORT INFORMATION
  Report Type: Spontaneous
  Country: US (occurrence: US)
  Receive Date: 20250709
  Receipt Date: 20250709
  Transmission Date: 20251021
  Serious: No
  Sender: MADRIGAL PHARMACEUTICALS
  Company Number: US-MADRIGAL PHARMACEUTICALS, INC-2025REZ2646

PATIENT

DRUGS (11)
  1. REZDIFFRA [Suspect]
     Active Substance: RESMETIROM
     Indication: Metabolic dysfunction-associated steatohepatitis
     Dosage: 100 MILLIGRAM, QD
     Route: 048
     Dates: start: 202502
  2. REZDIFFRA [Suspect]
     Active Substance: RESMETIROM
     Dosage: 100 MILLIGRAM, QD, THERAPY RESTARTED
     Route: 048
     Dates: start: 2025
  3. GABAPENTIN [Concomitant]
     Active Substance: GABAPENTIN
  4. MOUNJARO [Concomitant]
     Active Substance: TIRZEPATIDE
  5. EZETIMIBE\ROSUVASTATIN CALCIUM [Concomitant]
     Active Substance: EZETIMIBE\ROSUVASTATIN CALCIUM
  6. AMLODIPINE [Concomitant]
     Active Substance: AMLODIPINE BESYLATE
  7. ESOMEPRAZOLE [Concomitant]
     Active Substance: ESOMEPRAZOLE
  8. JARDIANCE [Concomitant]
     Active Substance: EMPAGLIFLOZIN
  9. LOSARTAN [Concomitant]
     Active Substance: LOSARTAN
  10. LOVASTATIN [Concomitant]
     Active Substance: LOVASTATIN
  11. OZEMPIC [Concomitant]
     Active Substance: SEMAGLUTIDE

REACTIONS (7)
  - Fatigue [Recovering/Resolving]
  - Gastrointestinal sounds abnormal [Not Recovered/Not Resolved]
  - Asthenia [Not Recovered/Not Resolved]
  - Aspartate aminotransferase increased [Unknown]
  - Alanine aminotransferase increased [Unknown]
  - Nausea [Recovering/Resolving]
  - Diarrhoea [Recovering/Resolving]

NARRATIVE: CASE EVENT DATE: 20250303
